FAERS Safety Report 24969862 (Version 1)
Quarter: 2025Q1

REPORT INFORMATION
  Report Type: Report from Study
  Country: US (occurrence: US)
  Receive Date: 20250214
  Receipt Date: 20250214
  Transmission Date: 20250409
  Serious: Yes (Other)
  Sender: ACADIA PHARMACEUTICALS
  Company Number: US-ACADIA PHARMACEUTICALS INC.-ACA-2025-PIM-001471

PATIENT
  Age: 60 Year
  Sex: Male

DRUGS (14)
  1. NUPLAZID [Suspect]
     Active Substance: PIMAVANSERIN TARTRATE
     Indication: Parkinson^s disease
     Dosage: 34 MILLIGRAM, QD
     Route: 048
  2. ELIQUIS [Concomitant]
     Active Substance: APIXABAN
  3. OMEPRAZOLE [Concomitant]
     Active Substance: OMEPRAZOLE
  4. FLUDROCORTISONE [Concomitant]
     Active Substance: FLUDROCORTISONE
  5. CARBIDOPA AND LEVODOPA [Concomitant]
     Active Substance: CARBIDOPA\LEVODOPA
  6. SCOPOLAMINE HYDROBROMIDE [Concomitant]
     Active Substance: SCOPOLAMINE HYDROBROMIDE
  7. RIVASTIGMINE [Concomitant]
     Active Substance: RIVASTIGMINE
  8. LINZESS [Concomitant]
     Active Substance: LINACLOTIDE
  9. TAMSULOSIN [Concomitant]
     Active Substance: TAMSULOSIN
  10. MIRALAX [Concomitant]
     Active Substance: POLYETHYLENE GLYCOL 3350
  11. CLONAZEPAM [Concomitant]
     Active Substance: CLONAZEPAM
  12. MIRTAZAPINE [Concomitant]
     Active Substance: MIRTAZAPINE
  13. CITALOPRAM [Concomitant]
     Active Substance: CITALOPRAM
  14. TOLTERODINE [Concomitant]
     Active Substance: TOLTERODINE

REACTIONS (5)
  - Thrombosis [Unknown]
  - Femur fracture [Unknown]
  - Urinary tract infection [Unknown]
  - Gait inability [Unknown]
  - Fall [Unknown]

NARRATIVE: CASE EVENT DATE: 20240902
